FAERS Safety Report 4264808-8 (Version None)
Quarter: 2004Q1

REPORT INFORMATION
  Report Type: 
  Country: None (occurrence: None)
  Receive Date: 20040105
  Receipt Date: 20031229
  Transmission Date: 20041129
  Serious: Yes (Hospitalization)
  Sender: FDA-Public Use
  Company Number: 2003189653AT

PATIENT
  Age: 52 Year
  Sex: Male

DRUGS (1)
  1. CLINDAMYCIN HCL [Suspect]
     Indication: TOOTH INFECTION
     Dosage: 300 MG, ORAL
     Route: 048

REACTIONS (9)
  - BURNING SENSATION [None]
  - CHOKING [None]
  - COUGH [None]
  - EPIGLOTTIS ULCER [None]
  - HOARSENESS [None]
  - LARYNGEAL ULCERATION [None]
  - LARYNGITIS [None]
  - NAUSEA [None]
  - PHARYNGEAL ULCERATION [None]
